FAERS Safety Report 9735108 (Version 1)
Quarter: 2013Q4

REPORT INFORMATION
  Report Type: Spontaneous
  Country: TW (occurrence: None)
  Receive Date: 20131204
  Receipt Date: 20131204
  Transmission Date: 20140711
  Serious: Yes (Hospitalization)
  Sender: FDA-Public Use
  Company Number: 2013-1827

PATIENT
  Age: 67 Year
  Sex: Male

DRUGS (12)
  1. CARFILZOMIB [Suspect]
     Dosage: (34 MG,DAYS 1,2) INTRAVENOUS
     Route: 042
     Dates: start: 20130318, end: 20130319
  2. DEXAMETHASONE [Suspect]
     Dosage: (20 MG, DAYS 1, 2,8,9,15,16,22,23, EVERY 28 DAYS) , ORAL
     Route: 048
     Dates: start: 20130318, end: 20130924
  3. NEXIUM [Concomitant]
  4. VALTREX (VALACICLOVIR) [Concomitant]
  5. LIPITOR (ATORVASTATIN CALCIUM) (ATORVASTATIN CALCIUM) [Concomitant]
  6. RASITOL (FUROSEMIDE) (FUROSEMIDE) [Concomitant]
  7. SOLU-CORTEF (HYDROCORTISONE SODIUM) (HYDROCORTISONE SODIUM) [Concomitant]
  8. ACETAMINOPHEN (PARACETAMOL) (PARACETAMOL) [Concomitant]
  9. AUGMENTINE (AMOXICILLIN SODIUM, CLAVULANATE POTASSIUM) (AMOXICILLIN, SODIUM, CLAVULANATE POTASSIUM) [Concomitant]
  10. CEFEPIME (CEFEPIME) (CEFEPIME) [Concomitant]
  11. MAXIPIME (CEFEPINE HYDROCHLORIDE) (CEFEPINE HYDROCHLORIDE) [Concomitant]
  12. ADALAT (NIFEDIPINE) (NIFEDIPINE) [Concomitant]

REACTIONS (5)
  - Discomfort [None]
  - Influenza [None]
  - Generalised oedema [None]
  - Urine output decreased [None]
  - Hypertension [None]
